FAERS Safety Report 22658112 (Version 1)
Quarter: 2023Q2

REPORT INFORMATION
  Report Type: Spontaneous
  Country: GR (occurrence: GR)
  Receive Date: 20230630
  Receipt Date: 20230630
  Transmission Date: 20230722
  Serious: Yes (Hospitalization, Other)
  Sender: FDA-Public Use
  Company Number: GR-Accord-364510

PATIENT
  Age: 60 Year

DRUGS (2)
  1. DEXMEDETOMIDINE HYDROCHLORIDE [Suspect]
     Active Substance: DEXMEDETOMIDINE HYDROCHLORIDE
     Indication: Product used for unknown indication
     Dosage: DRIP INFUSION, LOADING OF  1MG/KG
  2. LIDOCAINE [Suspect]
     Active Substance: LIDOCAINE
     Indication: Anaesthesia

REACTIONS (4)
  - Laryngospasm [Unknown]
  - Muscle spasms [Unknown]
  - Bradycardia [Unknown]
  - Oxygen saturation decreased [Unknown]
